FAERS Safety Report 9827773 (Version 2)
Quarter: 2013Q4

REPORT INFORMATION
  Report Type: Spontaneous
  Country: US (occurrence: None)
  Receive Date: 20131127
  Receipt Date: 20131127
  Transmission Date: 20140711
  Serious: Yes (Other)
  Sender: FDA-Public Use
  Company Number: 218092

PATIENT
  Age: 64 Year
  Sex: Male

DRUGS (1)
  1. PICATO [Suspect]
     Indication: ACTINIC KERATOSIS
     Dates: start: 20120615, end: 20120616

REACTIONS (9)
  - Application site pain [None]
  - Application site erythema [None]
  - Application site pain [None]
  - Application site scab [None]
  - Application site pustules [None]
  - Wound drainage [None]
  - Incorrect dose administered [None]
  - Off label use [None]
  - Infection [None]
